FAERS Safety Report 8256375-9 (Version None)
Quarter: 2012Q2

REPORT INFORMATION
  Report Type: 
  Country: None (occurrence: None)
  Receive Date: 20120403
  Receipt Date: 20120323
  Transmission Date: 20120825
  Serious: No
  Sender: FDA-Public Use
  Company Number: US-B.I. PHARMACEUTICALS,INC./RIDGEFIELD-2012-BP-05510BP

PATIENT
  Sex: Female

DRUGS (8)
  1. FLUTICASONE FUROATE [Concomitant]
     Indication: SEASONAL ALLERGY
     Route: 045
     Dates: start: 20040101
  2. VENTOLIN [Concomitant]
     Indication: INHALATION THERAPY
  3. AZELASTINE HCL [Concomitant]
     Indication: SEASONAL ALLERGY
     Route: 045
     Dates: start: 20040101
  4. VENTOLIN [Concomitant]
     Indication: ASTHMA
  5. ALLERGY SHOTS [Concomitant]
     Indication: SEASONAL ALLERGY
  6. SPIRIVA [Suspect]
     Indication: CHRONIC OBSTRUCTIVE PULMONARY DISEASE
     Dosage: 18 MCG
     Route: 055
     Dates: start: 20040101
  7. VENTOLIN [Concomitant]
     Indication: CHRONIC OBSTRUCTIVE PULMONARY DISEASE
     Dosage: 4 PUF
     Route: 055
     Dates: start: 20040101
  8. ZYRTEC [Concomitant]
     Indication: SEASONAL ALLERGY
     Route: 048

REACTIONS (2)
  - DYSPNOEA [None]
  - WHEEZING [None]
